FAERS Safety Report 11055515 (Version 4)
Quarter: 2016Q1

REPORT INFORMATION
  Report Type: Spontaneous
  Country: US (occurrence: US)
  Receive Date: 20150422
  Receipt Date: 20160325
  Transmission Date: 20160525
  Serious: No
  Sender: FDA-Public Use
  Company Number: US-PFIZER INC-2015137455

PATIENT
  Age: 52 Year
  Sex: Female
  Weight: 107.48 kg

DRUGS (23)
  1. LYRICA [Suspect]
     Active Substance: PREGABALIN
     Dosage: UNK
  2. LIPITOR [Concomitant]
     Active Substance: ATORVASTATIN CALCIUM
     Dosage: 10 MG, DAILY (10 MG BY MOUTH DAILY LATE.)
     Route: 048
  3. ZOFRAN [Concomitant]
     Active Substance: ONDANSETRON HYDROCHLORIDE
     Indication: VOMITING
  4. LOTRISONE [Concomitant]
     Active Substance: BETAMETHASONE DIPROPIONATE\CLOTRIMAZOLE
     Dosage: UNK, 2X/DAY
  5. FLONASE [Concomitant]
     Active Substance: FLUTICASONE PROPIONATE
     Dosage: UNK, DAILY [2 SPRAYS IN EACH NOSTRIL DAILY]
     Route: 045
  6. ZOFRAN [Concomitant]
     Active Substance: ONDANSETRON HYDROCHLORIDE
     Indication: NAUSEA
     Dosage: 4 MG, AS NEEDED (TAKE 4 MG BY MOUTH EVERY 8 HOURS AS NEEDED FOR NAUSEA/EMESIS)
     Route: 048
  7. DESYREL [Concomitant]
     Active Substance: TRAZODONE HYDROCHLORIDE
     Dosage: 300 MG, 1X/DAY (TAKE 300 MG BY MOUTH DAILY AT BEDTIME)
     Route: 048
  8. VITAMIN B12 [Concomitant]
     Active Substance: CYANOCOBALAMIN
     Dosage: UNK [1000 MCG TABLET]
     Route: 060
  9. VOLTAREN [Concomitant]
     Active Substance: DICLOFENAC SODIUM
     Dosage: UNK [1% GEL]
  10. LYRICA [Suspect]
     Active Substance: PREGABALIN
     Dosage: 100 MG, QID- 5X/DAY (TAKE ONE CAPSULE 4-5 TIMES DAILY)
     Route: 048
     Dates: start: 20160222
  11. ROBAXIN [Concomitant]
     Active Substance: METHOCARBAMOL
     Dosage: 750 MG TID-QID
     Route: 048
  12. NYSTATIN. [Concomitant]
     Active Substance: NYSTATIN
     Dosage: UNK, DAILY [100,000 UNIT/GRAM POWDER]
  13. ROXICODONE [Concomitant]
     Active Substance: OXYCODONE HYDROCHLORIDE
     Dosage: 15 MG, UNK (TAKE 1 TAB BY MOUTH 5 TIMES DAILY FOR 30 DAYS. MAX DAILY AMOUNT: 75 MG)
     Route: 048
     Dates: start: 20160303
  14. ROBAXIN [Concomitant]
     Active Substance: METHOCARBAMOL
     Dosage: 750 MG, AS NEEDED
     Route: 048
  15. REQUIP [Concomitant]
     Active Substance: ROPINIROLE HYDROCHLORIDE
     Dosage: 4 MG, 1X/DAY (TAKE 4 MG BY MOUTH DALLY AT BEDTIME)
     Route: 048
  16. IMITREX [Concomitant]
     Active Substance: SUMATRIPTAN SUCCINATE
     Dosage: 100 MG, UNK [SEE ADMINISTRATION INSTRUCTIONS, MAY REPEAT IN 2 HRS;MAX DOSE 200MG IN 24 HRS]
     Route: 048
  17. ECOTRIN [Concomitant]
     Active Substance: ASPIRIN
     Dosage: 81 MG, DAILY
     Route: 048
  18. KLONOPIN [Concomitant]
     Active Substance: CLONAZEPAM
     Dosage: 1 MG, 2X/DAY
     Route: 048
  19. LOPID [Concomitant]
     Active Substance: GEMFIBROZIL
     Dosage: 600 MG, 2X/DAY
     Route: 048
  20. NEXLUM [Concomitant]
     Dosage: 20 MG, AS NEEDED (TAKE 20 MG BY MOUTH. PRN)
     Route: 048
  21. ROBAXIN [Concomitant]
     Active Substance: METHOCARBAMOL
     Indication: MUSCLE SPASMS
     Dosage: 750 MG TID-QID
     Route: 048
  22. MIRALAX [Concomitant]
     Active Substance: POLYETHYLENE GLYCOL 3350
     Dosage: 17 G, DAILY [DISSOLVE IN 8 OUNCES OF FLUID AND DRINK ENTIRE LIQUID]
     Route: 048
  23. ZOLOFT [Concomitant]
     Active Substance: SERTRALINE HYDROCHLORIDE
     Dosage: 200 MG, DAILY
     Route: 048

REACTIONS (1)
  - Malaise [Unknown]
